FAERS Safety Report 12213233 (Version 1)
Quarter: 2016Q1

REPORT INFORMATION
  Report Type: Spontaneous
  Country: FR (occurrence: FR)
  Receive Date: 20160328
  Receipt Date: 20160328
  Transmission Date: 20160526
  Serious: Yes (Hospitalization)
  Sender: FDA-Public Use
  Company Number: FR-HOSPIRA-3214905

PATIENT
  Age: 28 Year
  Sex: Female
  Weight: 100 kg

DRUGS (2)
  1. DOCETAXEL HOSPIRA [Suspect]
     Active Substance: DOCETAXEL
     Indication: BREAST CANCER
     Route: 041
     Dates: start: 20160217
  2. CORTANCYL [Concomitant]
     Active Substance: PREDNISONE
     Indication: PREMEDICATION

REACTIONS (5)
  - Pruritus [Recovered/Resolved]
  - Mucosal inflammation [Recovered/Resolved]
  - Vulvovaginal mycotic infection [Recovered/Resolved]
  - Rash [Recovered/Resolved]
  - Drug eruption [Recovered/Resolved]

NARRATIVE: CASE EVENT DATE: 201602
